FAERS Safety Report 4317622-9 (Version None)
Quarter: 2004Q1

REPORT INFORMATION
  Report Type: 
  Country: None (occurrence: None)
  Receive Date: 20040315
  Receipt Date: 20011002
  Transmission Date: 20041129
  Serious: Yes (Life-Threatening, Other)
  Sender: FDA-Public Use
  Company Number: 11013893

PATIENT
  Sex: Male

DRUGS (2)
  1. STADOL [Suspect]
     Dosage: DOSAGE: MULTIPLE (1 MONTH)
     Route: 045
  2. STADOL [Suspect]
     Route: 042

REACTIONS (3)
  - DEPENDENCE [None]
  - DRUG WITHDRAWAL SYNDROME [None]
  - SUICIDE ATTEMPT [None]
